FAERS Safety Report 11987482 (Version 1)
Quarter: 2016Q1

REPORT INFORMATION
  Report Type: Spontaneous
  Country: US (occurrence: None)
  Receive Date: 20160201
  Receipt Date: 20160201
  Transmission Date: 20160526
  Serious: Yes (Life-Threatening)
  Sender: FDA-Public Use
  Company Number: None

PATIENT
  Age: 47 Year
  Sex: Male
  Weight: 88.45 kg

DRUGS (4)
  1. PREDNISONE. [Concomitant]
     Active Substance: PREDNISONE
  2. ALBUTEROL. [Concomitant]
     Active Substance: ALBUTEROL
  3. AMOXICILLIN. [Concomitant]
     Active Substance: AMOXICILLIN
  4. IPRATROPIUM ATROVENT 0.02 % [Suspect]
     Active Substance: IPRATROPIUM
     Indication: BRONCHITIS
     Route: 055
     Dates: start: 20160125, end: 20160126

REACTIONS (1)
  - Dyspnoea [None]

NARRATIVE: CASE EVENT DATE: 20160127
